FAERS Safety Report 17939212 (Version 9)
Quarter: 2021Q3

REPORT INFORMATION
  Report Type: Report from Study
  Country: None (occurrence: NL)
  Receive Date: 20200624
  Receipt Date: 20210702
  Transmission Date: 20211014
  Serious: Yes (Other)
  Sender: FDA-Public Use
  Company Number: NL-ABBVIE-20K-114-3455148-00

PATIENT
  Sex: Male

DRUGS (12)
  1. DUODOPA [Suspect]
     Active Substance: CARBIDOPA\LEVODOPA
     Dosage: MD: 10.0 ML; CD: 3.4 ML/H; ED: 3.8 ML;
     Route: 050
  2. PROTEIN [Concomitant]
     Active Substance: PROTEIN
     Indication: WEIGHT DECREASED
  3. DUODOPA [Suspect]
     Active Substance: CARBIDOPA\LEVODOPA
     Indication: PARKINSON^S DISEASE
     Dosage: MD 6.0ML; CD 1.7ML/H; ED 1.0ML
     Route: 050
     Dates: start: 20200608, end: 202006
  4. DUODOPA [Suspect]
     Active Substance: CARBIDOPA\LEVODOPA
     Dosage: MD 10.0; CD 3.8; ED 3.3
     Route: 050
     Dates: start: 2020, end: 2020
  5. DUODOPA [Suspect]
     Active Substance: CARBIDOPA\LEVODOPA
     Dosage: MD 10.0; CD 3.6; ED 3.8
     Route: 050
     Dates: start: 2020, end: 2020
  6. DUODOPA [Suspect]
     Active Substance: CARBIDOPA\LEVODOPA
     Dosage: MD 10.0ML; CD 3.5 M/H; ED 3.8ML
     Route: 050
  7. DUODOPA [Suspect]
     Active Substance: CARBIDOPA\LEVODOPA
     Dosage: MD 10.0; CD 3.6; ED 3.3
     Route: 050
     Dates: start: 2020, end: 2020
  8. MACROGOL [Concomitant]
     Active Substance: POLYETHYLENE GLYCOLS
     Indication: BOWEL MOVEMENT IRREGULARITY
  9. MOVICOLON [Concomitant]
     Active Substance: POLYETHYLENE GLYCOL 3350\POTASSIUM CHLORIDE\SODIUM BICARBONATE\SODIUM CHLORIDE
     Indication: PRODUCT USED FOR UNKNOWN INDICATION
  10. DUODOPA [Suspect]
     Active Substance: CARBIDOPA\LEVODOPA
     Dosage: MD 10.0 CD 3.8 ED 3.3
     Route: 050
     Dates: start: 202006, end: 2020
  11. DUODOPA [Suspect]
     Active Substance: CARBIDOPA\LEVODOPA
     Dosage: MD 10.0ML; CD 3.6ML/H; ED 3.3ML
     Route: 050
     Dates: start: 2020, end: 2020
  12. CLOZAPINE. [Concomitant]
     Active Substance: CLOZAPINE
     Indication: HALLUCINATION

REACTIONS (34)
  - Stoma site discharge [Not Recovered/Not Resolved]
  - Freezing phenomenon [Not Recovered/Not Resolved]
  - Stoma site discharge [Recovered/Resolved]
  - Skin haemorrhage [Not Recovered/Not Resolved]
  - Gastrostomy [Unknown]
  - Sedation complication [Unknown]
  - Reduced facial expression [Not Recovered/Not Resolved]
  - Somnolence [Not Recovered/Not Resolved]
  - Device dislocation [Not Recovered/Not Resolved]
  - Dyskinesia [Not Recovered/Not Resolved]
  - Muscle rigidity [Not Recovered/Not Resolved]
  - Bradykinesia [Not Recovered/Not Resolved]
  - Device loosening [Unknown]
  - Weight increased [Not Recovered/Not Resolved]
  - Restlessness [Recovered/Resolved]
  - Stoma site erythema [Recovered/Resolved]
  - Drug ineffective [Recovered/Resolved]
  - Infrequent bowel movements [Recovered/Resolved]
  - Fatigue [Not Recovered/Not Resolved]
  - Musculoskeletal stiffness [Not Recovered/Not Resolved]
  - Disturbance in attention [Not Recovered/Not Resolved]
  - Mental impairment [Not Recovered/Not Resolved]
  - Hallucination [Recovering/Resolving]
  - Stoma site extravasation [Not Recovered/Not Resolved]
  - On and off phenomenon [Not Recovered/Not Resolved]
  - Bradyphrenia [Not Recovered/Not Resolved]
  - Gait disturbance [Not Recovered/Not Resolved]
  - Stoma site reaction [Unknown]
  - Tension [Not Recovered/Not Resolved]
  - Delirium [Recovered/Resolved]
  - On and off phenomenon [Recovering/Resolving]
  - Stoma site irritation [Recovered/Resolved]
  - Hyperkinesia [Not Recovered/Not Resolved]
  - Abnormal dreams [Not Recovered/Not Resolved]

NARRATIVE: CASE EVENT DATE: 2020
